FAERS Safety Report 11272050 (Version 1)
Quarter: 2015Q3

REPORT INFORMATION
  Report Type: Spontaneous
  Country: IN (occurrence: None)
  Receive Date: 20150713
  Receipt Date: 20150713
  Transmission Date: 20151125
  Serious: Yes (Hospitalization, Other)
  Sender: FDA-Public Use
  Company Number: CO-LA-IN-2015-025

PATIENT
  Age: 63 Year
  Sex: Male

DRUGS (9)
  1. ENALAPRIL (ENALAPRIL MALEATE) [Concomitant]
  2. GLIBENCLAMIDE [Concomitant]
     Active Substance: GLYBURIDE
  3. ATORVASTATIN (ATORVASTATIN CALCIUM PROPYLENE GLYCOL SOLVATE) [Concomitant]
  4. AUGMENTIN [Concomitant]
     Active Substance: AMOXICILLIN\CLAVULANATE POTASSIUM
  5. PANTOP (PANTOPRAZOLE SODIUM SESQUIHYDRATE) [Concomitant]
  6. DIGOXIN (UNKNOWN) (DIGOXIN) [Suspect]
     Active Substance: DIGOXIN
     Indication: CARDIAC FAILURE CONGESTIVE
  7. PARACETAMOL [Concomitant]
     Active Substance: ACETAMINOPHEN
  8. ECOSPRIN (ACETYLSALICYLIC ACID) [Concomitant]
  9. CLOPITAB (CLOPIDOGREL BISULFATE) [Concomitant]

REACTIONS (7)
  - Palpitations [None]
  - Vomiting [None]
  - Headache [None]
  - Electrocardiogram QRS complex prolonged [None]
  - Ventricular tachycardia [None]
  - Asthenia [None]
  - Visual impairment [None]
